FAERS Safety Report 11362259 (Version 1)
Quarter: 2015Q3

REPORT INFORMATION
  Report Type: Spontaneous
  Country: US (occurrence: US)
  Receive Date: 20150810
  Receipt Date: 20150810
  Transmission Date: 20151125
  Serious: No
  Sender: FDA-Public Use
  Company Number: US-TEVA-584349USA

PATIENT
  Sex: Female

DRUGS (1)
  1. PROAIR HFA [Suspect]
     Active Substance: ALBUTEROL SULFATE
     Indication: BRONCHIECTASIS
     Dosage: 2 PUFFS EVERY 4-6 HOURS
     Route: 055

REACTIONS (5)
  - Feeling jittery [Unknown]
  - Feeling abnormal [Unknown]
  - Tremor [Unknown]
  - Intentional product use issue [Unknown]
  - Therapeutic response unexpected [Unknown]
